FAERS Safety Report 7639769-1 (Version None)
Quarter: 2011Q3

REPORT INFORMATION
  Report Type: 
  Country: None (occurrence: None)
  Receive Date: 20110727
  Receipt Date: 20110718
  Transmission Date: 20111222
  Serious: Yes (Other)
  Sender: FDA-Public Use
  Company Number: PHHY2011US64104

PATIENT
  Sex: Female

DRUGS (6)
  1. EXJADE [Suspect]
     Indication: IRON METABOLISM DISORDER
     Dosage: 1500 MG, DAILY
     Dates: start: 20101101
  2. FOLIC ACID [Concomitant]
  3. TEGRETOL [Concomitant]
  4. VITAMIN D [Concomitant]
  5. HUMALOG [Concomitant]
  6. ZOVIA 1/35E-21 [Concomitant]

REACTIONS (1)
  - MENTAL IMPAIRMENT [None]
